FAERS Safety Report 4761522-7 (Version None)
Quarter: 2005Q3

REPORT INFORMATION
  Report Type: 
  Country: None (occurrence: None)
  Receive Date: 20050830
  Receipt Date: 20050523
  Transmission Date: 20060218
  Serious: Yes (Hospitalization)
  Sender: FDA-Public Use
  Company Number: USA050598768

PATIENT
  Age: 51 Year
  Sex: Female
  Weight: 46 kg

DRUGS (11)
  1. SYMBYAX [Suspect]
     Indication: DEPRESSION
     Dates: start: 20050522
  2. ZYPREXA [Suspect]
     Indication: DEPRESSION
     Dates: start: 20010101
  3. ZOLOFT [Concomitant]
  4. REMERON [Concomitant]
  5. ATIVAN [Concomitant]
  6. KLONOPIN [Concomitant]
  7. ACIPHEX [Concomitant]
  8. TEMAZEPAM [Concomitant]
  9. SYNTHROID [Concomitant]
  10. ESTRADIOL;NORGESTIMATE [Concomitant]
  11. ZOCOR [Concomitant]

REACTIONS (4)
  - HANGOVER [None]
  - HEART RATE INCREASED [None]
  - PAIN [None]
  - SWELLING [None]
